FAERS Safety Report 10039337 (Version 2)
Quarter: 2014Q2

REPORT INFORMATION
  Report Type: Spontaneous
  Country: US (occurrence: US)
  Receive Date: 20140326
  Receipt Date: 20140402
  Transmission Date: 20141212
  Serious: No
  Sender: FDA-Public Use
  Company Number: US-PFIZER INC-2014082503

PATIENT
  Age: 55 Year
  Sex: Female

DRUGS (3)
  1. ADVIL [Suspect]
     Indication: PAIN IN EXTREMITY
     Dosage: 200 MG, TWO TIMES A DAY
     Route: 048
     Dates: end: 201403
  2. ADVIL [Suspect]
     Indication: ANTIINFLAMMATORY THERAPY
     Dosage: 200 MG, ONCE A DAY
     Route: 048
     Dates: start: 201403, end: 201403
  3. PREVACID [Concomitant]
     Dosage: UNK, EVERY ALTERNATE DAY

REACTIONS (5)
  - Feeling drunk [Unknown]
  - Feeling abnormal [Unknown]
  - Product colour issue [Unknown]
  - Product label issue [Unknown]
  - Product commingling [Unknown]
